FAERS Safety Report 8496307-1 (Version None)
Quarter: 2012Q3

REPORT INFORMATION
  Report Type: 
  Country: None (occurrence: None)
  Receive Date: 20120709
  Receipt Date: 20120704
  Transmission Date: 20120928
  Serious: Yes (Hospitalization)
  Sender: FDA-Public Use
  Company Number: PHHY2012FR023727

PATIENT
  Sex: Female
  Weight: 65 kg

DRUGS (7)
  1. KARDEGIC [Concomitant]
     Dosage: UNK UKN, UNK
  2. VITAMIN D [Concomitant]
     Indication: OSTEOPOROSIS
     Dosage: 10000 IU EVERY 2 MONTH , UNK
  3. MICROLAX [Concomitant]
     Indication: CONSTIPATION
     Dosage: 2 DF, QD
  4. INDAPAMIDE [Concomitant]
     Dates: start: 20110101, end: 20120101
  5. POLY-KARAYA [Concomitant]
     Dosage: 1 DF, QD
     Dates: start: 20000101, end: 20110101
  6. PERINDOPRIL ERBUMINE [Concomitant]
     Dates: start: 20110101, end: 20120101
  7. ZOLEDRONOC ACID [Suspect]
     Route: 042
     Dates: start: 20110615

REACTIONS (8)
  - DILATATION ATRIAL [None]
  - WHITE BLOOD CELL DISORDER [None]
  - AORTIC VALVE INCOMPETENCE [None]
  - SENSORY DISTURBANCE [None]
  - HEADACHE [None]
  - TRANSIENT ISCHAEMIC ATTACK [None]
  - PARALYSIS [None]
  - EMBOLIC STROKE [None]
